FAERS Safety Report 7814350-X (Version None)
Quarter: 2011Q4

REPORT INFORMATION
  Report Type: 
  Country: None (occurrence: None)
  Receive Date: 20111011
  Receipt Date: 20101026
  Transmission Date: 20120403
  Serious: Yes (Hospitalization, Other)
  Sender: FDA-Public Use
  Company Number: 2010SP056930

PATIENT
  Age: 25 Year
  Sex: Female
  Weight: 113.3993 kg

DRUGS (3)
  1. NUVARING [Suspect]
     Indication: MENSTRUAL DISORDER
     Dates: start: 20080701, end: 20081001
  2. NUVARING [Suspect]
     Indication: MENSTRUAL DISORDER
     Dates: start: 20071001, end: 20071001
  3. MARIJUANA [Concomitant]

REACTIONS (10)
  - CONVULSION [None]
  - RESPIRATORY DISORDER [None]
  - PAIN IN EXTREMITY [None]
  - IMMOBILE [None]
  - THROMBOSIS [None]
  - BLOOD CHOLESTEROL INCREASED [None]
  - DIZZINESS [None]
  - PULMONARY EMBOLISM [None]
  - MULTIPLE INJURIES [None]
  - SYNCOPE [None]
